FAERS Safety Report 11968542 (Version 1)
Quarter: 2016Q1

REPORT INFORMATION
  Report Type: Spontaneous
  Country: US (occurrence: US)
  Receive Date: 20160128
  Receipt Date: 20160128
  Transmission Date: 20160526
  Serious: No
  Sender: FDA-Public Use
  Company Number: US-JNJFOC-20160115842

PATIENT
  Age: 62 Year
  Sex: Female
  Weight: 110 kg

DRUGS (6)
  1. WOMENS ROGAINE UNSCENTED [Suspect]
     Active Substance: MINOXIDIL
     Route: 061
  2. THYROID THERAPY [Concomitant]
     Active Substance: UNSPECIFIED INGREDIENT
     Indication: THYROID DISORDER
     Route: 065
  3. MINERALS NOS [Concomitant]
     Active Substance: MINERALS
     Indication: GENERAL PHYSICAL CONDITION
     Route: 065
  4. VITAMIN C [Concomitant]
     Active Substance: ASCORBIC ACID
     Indication: GENERAL PHYSICAL CONDITION
     Route: 065
  5. WOMENS ROGAINE UNSCENTED [Suspect]
     Active Substance: MINOXIDIL
     Indication: HAIR GROWTH ABNORMAL
     Dosage: 1/2 CAP FULL
     Route: 061
     Dates: start: 20151228, end: 20160114
  6. PROGESTERONE. [Concomitant]
     Active Substance: PROGESTERONE
     Indication: BLOOD OESTROGEN DECREASED
     Route: 065

REACTIONS (3)
  - Eye swelling [Recovered/Resolved]
  - Pruritus [Recovered/Resolved]
  - Eye pruritus [Recovered/Resolved]

NARRATIVE: CASE EVENT DATE: 20160104
